FAERS Safety Report 8846487 (Version 2)
Quarter: 2012Q4

REPORT INFORMATION
  Report Type: 
  Country: DE (occurrence: DE)
  Receive Date: 20121017
  Receipt Date: 20121022
  Transmission Date: 20130627
  Serious: Yes (Life-Threatening, Hospitalization)
  Sender: FDA-Public Use
  Company Number: DE-ASTRAZENECA-2012SE79128

PATIENT
  Age: 22669 Day
  Sex: Male
  Weight: 112 kg

DRUGS (1)
  1. BRILIQUE [Suspect]
     Indication: CORONARY ARTERIAL STENT INSERTION
     Route: 048
     Dates: start: 20120926

REACTIONS (2)
  - Nephrotic syndrome [Unknown]
  - Pulmonary oedema [Unknown]
